FAERS Safety Report 4958608-0 (Version None)
Quarter: 2006Q1

REPORT INFORMATION
  Report Type: 
  Country: None (occurrence: None)
  Receive Date: 20060127
  Receipt Date: 20050113
  Transmission Date: 20060701
  Serious: Yes (Hospitalization, Other)
  Sender: FDA-Public Use
  Company Number: 05-01-0056

PATIENT
  Age: 50 Year
  Sex: Female

DRUGS (1)
  1. CLOZAPINE [Suspect]
     Indication: SCHIZOPHRENIA
     Dosage: 900MG QD, ORAL
     Route: 048
     Dates: start: 20001001, end: 20041001

REACTIONS (3)
  - GLUCOSE TOLERANCE IMPAIRED [None]
  - STUPOR [None]
  - SYNCOPE [None]
